FAERS Safety Report 7259400-7 (Version None)
Quarter: 2011Q1

REPORT INFORMATION
  Report Type: 
  Country: None (occurrence: None)
  Receive Date: 20110129
  Receipt Date: 20100826
  Transmission Date: 20110831
  Serious: No
  Sender: FDA-Public Use
  Company Number: US-ABBOTT-10P-163-0666264-00

PATIENT
  Age: 72 Year
  Sex: Female

DRUGS (6)
  1. VITAMIN B-12 [Concomitant]
     Indication: VITAMIN SUPPLEMENTATION
  2. AMLODIPINE BESYLATE AND BENAZEPRIL HCL [Concomitant]
     Indication: BLOOD PRESSURE
     Dosage: 10/20MG DAILY
  3. HUMIRA [Suspect]
     Indication: PSORIASIS
     Dates: start: 20100730
  4. BUSPIRONE [Concomitant]
     Indication: ANXIETY
  5. VITAMIN D [Concomitant]
     Indication: VITAMIN SUPPLEMENTATION
     Dosage: DAILY
  6. FLUOXETINE [Concomitant]
     Indication: DEPRESSION

REACTIONS (3)
  - PSORIASIS [None]
  - OEDEMA PERIPHERAL [None]
  - SKIN TIGHTNESS [None]
